FAERS Safety Report 4648736-1 (Version None)
Quarter: 2005Q2

REPORT INFORMATION
  Report Type: 
  Country: None (occurrence: None)
  Receive Date: 20050429
  Receipt Date: 20050413
  Transmission Date: 20051028
  Serious: Yes (Other)
  Sender: FDA-Public Use
  Company Number: PHEH2005US04267

PATIENT
  Sex: 0

DRUGS (1)
  1. FAMVIR [Suspect]

REACTIONS (1)
  - ERYTHEMA MULTIFORME [None]
